FAERS Safety Report 5993520-X (Version None)
Quarter: 2008Q4

REPORT INFORMATION
  Report Type: 
  Country: None (occurrence: None)
  Receive Date: 20081210
  Receipt Date: 20081203
  Transmission Date: 20090506
  Serious: Yes (Hospitalization)
  Sender: FDA-Public Use
  Company Number: DSA_32816_2008

PATIENT
  Age: 93 Year
  Sex: Female

DRUGS (5)
  1. ENALAPRIL MALEATE AND HYDROCHLOROTHIAZIDE [Suspect]
     Indication: HYPERTENSION
     Dosage: (1 TAB DAILY ORAL)
     Route: 048
     Dates: end: 20080623
  2. CARBAMAZEPINE [Suspect]
     Indication: FACIAL NEURALGIA
     Dosage: (200 MG ORAL)
     Route: 048
     Dates: end: 20080623
  3. AMLODIPINE BESYLATE [Concomitant]
  4. ASPIRIN LYSINE [Concomitant]
  5. ATENOLOL [Concomitant]

REACTIONS (4)
  - FALL [None]
  - HYPOCHLORAEMIA [None]
  - HYPOKALAEMIA [None]
  - HYPONATRAEMIA [None]
